FAERS Safety Report 21342946 (Version 1)
Quarter: 2022Q3

REPORT INFORMATION
  Report Type: Spontaneous
  Country: FR (occurrence: FR)
  Receive Date: 20220916
  Receipt Date: 20220916
  Transmission Date: 20221026
  Serious: Yes (Hospitalization)
  Sender: FDA-Public Use
  Company Number: None

PATIENT
  Age: 32 Year
  Sex: Female
  Weight: 52 kg

DRUGS (4)
  1. DIAZEPAM [Suspect]
     Active Substance: DIAZEPAM
     Indication: Suicide attempt
     Dosage: 7 CP DE 10 MG; IN TOTAL
     Route: 050
     Dates: start: 20220831
  2. ZOPICLONE [Suspect]
     Active Substance: ZOPICLONE
     Indication: Suicide attempt
     Dosage: 7 CP
     Route: 050
     Dates: start: 20220831
  3. FLUOXETINE HYDROCHLORIDE [Suspect]
     Active Substance: FLUOXETINE HYDROCHLORIDE
     Indication: Suicide attempt
     Dosage: 14 CP
     Route: 050
     Dates: start: 20220831
  4. ANAFRANIL [Suspect]
     Active Substance: CLOMIPRAMINE HYDROCHLORIDE
     Indication: Suicide attempt
     Dosage: 7 CP DE 75 MG
     Route: 050
     Dates: start: 20220831

REACTIONS (2)
  - Altered state of consciousness [Recovered/Resolved]
  - Poisoning deliberate [Recovered/Resolved]

NARRATIVE: CASE EVENT DATE: 20220831
